FAERS Safety Report 4784991-5 (Version None)
Quarter: 2005Q3

REPORT INFORMATION
  Report Type: 
  Country: None (occurrence: None)
  Receive Date: 20050928
  Receipt Date: 20050913
  Transmission Date: 20060218
  Serious: Yes (Other)
  Sender: FDA-Public Use
  Company Number: S05-USA-04289-01

PATIENT
  Age: 70 Year
  Sex: Male

DRUGS (3)
  1. LEXAPRO [Suspect]
     Indication: DEPRESSION
     Dosage: 10 MG QD PO
     Route: 048
     Dates: start: 20030101
  2. FLOMAX [Concomitant]
  3. PROSCAR [Concomitant]

REACTIONS (5)
  - CALCINOSIS [None]
  - HERPES ZOSTER [None]
  - HYPERTHYROIDISM [None]
  - STOMACH DISCOMFORT [None]
  - THYROID NEOPLASM [None]
